FAERS Safety Report 4827266-8 (Version None)
Quarter: 2005Q4

REPORT INFORMATION
  Report Type: 
  Country: None (occurrence: None)
  Receive Date: 20051114
  Receipt Date: 20051005
  Transmission Date: 20060501
  Serious: Yes (Other)
  Sender: FDA-Public Use
  Company Number: 2005AP05270

PATIENT
  Age: 22567 Day
  Sex: Female
  Weight: 70 kg

DRUGS (17)
  1. DIPRIVAN [Suspect]
     Indication: INDUCTION OF ANAESTHESIA
     Route: 042
     Dates: start: 20050611, end: 20050611
  2. DIPRIVAN [Interacting]
     Indication: SUBARACHNOID HAEMORRHAGE
     Route: 042
     Dates: start: 20050611, end: 20050611
  3. HERBESSER [Interacting]
     Indication: HYPERTENSION
     Route: 042
     Dates: start: 20050610, end: 20050611
  4. VECURONIUM BROMIDE [Concomitant]
     Indication: INDUCTION OF ANAESTHESIA
  5. EPHEDRINE [Concomitant]
     Indication: ATRIOVENTRICULAR BLOCK
     Route: 042
     Dates: start: 20050611
  6. VEEN-F [Concomitant]
     Indication: FLUID REPLACEMENT
     Route: 042
     Dates: start: 20050610, end: 20050611
  7. VEEN-F [Concomitant]
     Route: 042
     Dates: start: 20050611
  8. ISOTONIC SODIUM CHLORIDE SOLUTION [Concomitant]
     Indication: FLUID REPLACEMENT
     Route: 042
     Dates: start: 20050610, end: 20050611
  9. ATROPINE SULFATE [Concomitant]
     Indication: ANGIOGRAM CEREBRAL
     Route: 030
     Dates: start: 20050610, end: 20050610
  10. SOSEGON [Concomitant]
     Indication: ANGIOGRAM CEREBRAL
     Route: 030
     Dates: start: 20050610, end: 20050610
  11. LACTEC [Concomitant]
     Indication: FLUID REPLACEMENT
     Route: 042
     Dates: start: 20050611
  12. FENTANEST [Concomitant]
     Indication: ANALGESIC THERAPY
     Route: 042
     Dates: start: 20050611, end: 20050611
  13. MUSCULAX [Concomitant]
     Indication: HYPOTONIA
     Route: 042
     Dates: start: 20050611, end: 20050611
  14. SEVOFRANE [Concomitant]
     Indication: MAINTENANCE OF ANAESTHESIA
     Route: 055
     Dates: start: 20050611, end: 20050611
  15. LACTEC [Concomitant]
     Route: 042
     Dates: start: 20050611
  16. DOBUTREX [Concomitant]
     Indication: ATRIOVENTRICULAR BLOCK
     Route: 042
     Dates: start: 20050611
  17. MANNITOL [Concomitant]
     Indication: INTRACRANIAL HYPOTENSION
     Route: 042
     Dates: start: 20050611

REACTIONS (3)
  - ATRIOVENTRICULAR BLOCK COMPLETE [None]
  - BLOOD PRESSURE DECREASED [None]
  - SINUS ARREST [None]
